FAERS Safety Report 5677346-2 (Version None)
Quarter: 2008Q1

REPORT INFORMATION
  Report Type: 
  Country: None (occurrence: None)
  Receive Date: 20080324
  Receipt Date: 20080314
  Transmission Date: 20080703
  Serious: Yes (Other)
  Sender: FDA-Public Use
  Company Number: US-JNJFOC-20080304664

PATIENT
  Sex: Female

DRUGS (1)
  1. IBUPROFEN [Suspect]
     Indication: DRUG USE FOR UNKNOWN INDICATION

REACTIONS (1)
  - SPINAL CORD INJURY [None]
